FAERS Safety Report 6577504-9 (Version None)
Quarter: 2010Q1

REPORT INFORMATION
  Report Type: 
  Country: None (occurrence: None)
  Receive Date: 20100211
  Receipt Date: 20100202
  Transmission Date: 20100710
  Serious: Yes (Other)
  Sender: FDA-Public Use
  Company Number: DE-ASTRAZENECA-2010SE04664

PATIENT
  Age: 26400 Day
  Sex: Female
  Weight: 80 kg

DRUGS (1)
  1. ARIMIDEX [Suspect]
     Indication: BREAST CANCER
     Route: 048
     Dates: start: 20080117, end: 20090501

REACTIONS (1)
  - MUSCULOSKELETAL PAIN [None]
